FAERS Safety Report 8375833-X (Version None)
Quarter: 2012Q2

REPORT INFORMATION
  Report Type: 
  Country: None (occurrence: None)
  Receive Date: 20120522
  Receipt Date: 20120515
  Transmission Date: 20120825
  Serious: Yes (Hospitalization)
  Sender: FDA-Public Use
  Company Number: BE-GENZYME-CLOF-1001918

PATIENT
  Sex: Male
  Weight: 84 kg

DRUGS (13)
  1. ZOLPIDEM [Concomitant]
     Indication: INSOMNIA
     Dosage: 10 MG, PRN
     Route: 065
     Dates: start: 20101001
  2. BUSULFAN [Suspect]
     Indication: TRANSPLANT
  3. CYCLOPHOSPHAMIDE [Suspect]
     Indication: TRANSPLANT
  4. CLOFARABINE [Suspect]
     Indication: ACUTE LYMPHOCYTIC LEUKAEMIA
     Dosage: 20 MG/M2, QD
     Route: 042
     Dates: start: 20110103, end: 20110107
  5. BUSULFAN [Suspect]
     Indication: ACUTE LYMPHOCYTIC LEUKAEMIA
     Dosage: 282 MG, UNK
     Route: 042
     Dates: start: 20110628, end: 20110701
  6. POLYETHYLENE GLYCOL [Concomitant]
     Indication: CONSTIPATION
     Dosage: 1 SAC, PRN
     Route: 065
     Dates: start: 20101001
  7. REMERGON [Concomitant]
     Indication: DEPRESSION
     Dosage: 15 MG, QD
     Route: 065
     Dates: start: 20100125
  8. ACETAMINOPHEN [Concomitant]
     Indication: HEADACHE
     Dosage: 1 G, PRN
     Route: 065
     Dates: start: 20101208
  9. LASIX [Concomitant]
     Indication: CONSTIPATION
     Dosage: 20 MG, QD
     Route: 065
     Dates: start: 20101203
  10. CYCLOPHOSPHAMIDE [Suspect]
     Indication: ACUTE LYMPHOCYTIC LEUKAEMIA
     Dosage: 4380 MG, UNK
     Route: 042
     Dates: start: 20110702, end: 20110703
  11. LORAZEPAM [Concomitant]
     Indication: INSOMNIA
     Dosage: 2.5 MG, PRN
     Route: 065
     Dates: start: 20101210
  12. PANTOPRAZOLE [Concomitant]
     Indication: OESOPHAGITIS
     Dosage: 40 MG, QD
     Route: 065
     Dates: start: 20100301
  13. TRAMADOL HCL [Concomitant]
     Indication: PAIN
     Dosage: 20 GTT, PRN
     Route: 065
     Dates: start: 20101210

REACTIONS (1)
  - GASTRIC ANTRAL VASCULAR ECTASIA [None]
